FAERS Safety Report 14228416 (Version 4)
Quarter: 2018Q3

REPORT INFORMATION
  Report Type: Spontaneous
  Country: FR (occurrence: FR)
  Receive Date: 20171127
  Receipt Date: 20180706
  Transmission Date: 20181010
  Serious: Yes (Hospitalization, Other)
  Sender: FDA-Public Use
  Company Number: FR-CONCORDIA PHARMACEUTICALS INC.-GSH201711-006483

PATIENT
  Age: 28 Year
  Sex: Female

DRUGS (10)
  1. PLAQUENIL [Suspect]
     Active Substance: HYDROXYCHLOROQUINE SULFATE
     Indication: RHEUMATIC DISORDER
     Route: 048
     Dates: end: 20130603
  2. SPECIAFOLDINE [Concomitant]
     Active Substance: FOLIC ACID
  3. CERAZETTE [Concomitant]
  4. TAVANIC [Suspect]
     Active Substance: LEVOFLOXACIN
     Indication: OSTEITIS
     Route: 048
     Dates: start: 20130506, end: 20130530
  5. BACTRIM [Suspect]
     Active Substance: SULFAMETHOXAZOLE\TRIMETHOPRIM
     Indication: OSTEITIS
     Route: 048
     Dates: start: 20130506, end: 20130530
  6. PREVISCAN (FLUINDIONE) [Suspect]
     Active Substance: FLUINDIONE
     Indication: THROMBOSIS PROPHYLAXIS
     Route: 048
     Dates: start: 201305, end: 201306
  7. TRIATEC [Concomitant]
  8. LASILIX FAIBLE [Concomitant]
     Active Substance: FUROSEMIDE
  9. ALDACTONE [Concomitant]
     Active Substance: SPIRONOLACTONE
  10. PROCORALAN [Suspect]
     Active Substance: IVABRADINE
     Indication: CARDIAC FAILURE
     Route: 048
     Dates: start: 201305, end: 20130529

REACTIONS (9)
  - Oedema [Recovered/Resolved]
  - Rash morbilliform [None]
  - Skin lesion [None]
  - Pruritus [Recovered/Resolved]
  - Pyrexia [Recovered/Resolved]
  - Rash erythematous [None]
  - Angioedema [Recovered/Resolved]
  - Rash erythematous [Recovered/Resolved]
  - Generalised erythema [Recovered/Resolved]

NARRATIVE: CASE EVENT DATE: 20130527
